FAERS Safety Report 6901885-7 (Version None)
Quarter: 2010Q3

REPORT INFORMATION
  Report Type: 
  Country: None (occurrence: None)
  Receive Date: 20100803
  Receipt Date: 20080313
  Transmission Date: 20110219
  Serious: No
  Sender: FDA-Public Use
  Company Number: US-PFIZER INC-2008024764

PATIENT
  Sex: Female
  Weight: 72.6 kg

DRUGS (1)
  1. LYRICA [Suspect]

REACTIONS (1)
  - WEIGHT INCREASED [None]
